FAERS Safety Report 14300329 (Version 1)
Quarter: 2017Q4

REPORT INFORMATION
  Report Type: Spontaneous
  Country: FR (occurrence: FR)
  Receive Date: 20171219
  Receipt Date: 20171219
  Transmission Date: 20180321
  Serious: Yes (Other)
  Sender: FDA-Public Use
  Company Number: FR-MERCK KGAA-2037371

PATIENT
  Age: 84 Year
  Sex: Female
  Weight: 60 kg

DRUGS (8)
  1. FLUVASTATINE SODIQUE [Concomitant]
  2. LETROZOLE. [Concomitant]
     Active Substance: LETROZOLE
  3. KARDEGIC [Concomitant]
     Active Substance: ASPIRIN DL-LYSINE
  4. EXFORGE [Concomitant]
     Active Substance: AMLODIPINE BESYLATE\VALSARTAN
  5. LANSOPRAZOLE. [Concomitant]
     Active Substance: LANSOPRAZOLE
  6. CELIPROLOL [Concomitant]
     Active Substance: CELIPROLOL
  7. SERESTA [Concomitant]
     Active Substance: OXAZEPAM
  8. NOVOTHYROX [Suspect]
     Active Substance: LEVOTHYROXINE SODIUM
     Indication: PRODUCT USED FOR UNKNOWN INDICATION
     Route: 048
     Dates: start: 201703, end: 20171010

REACTIONS (4)
  - Nervousness [Not Recovered/Not Resolved]
  - Blood thyroid stimulating hormone increased [Unknown]
  - Muscle spasms [Not Recovered/Not Resolved]
  - Vertigo [Not Recovered/Not Resolved]

NARRATIVE: CASE EVENT DATE: 201704
